FAERS Safety Report 6048963-5 (Version None)
Quarter: 2009Q1

REPORT INFORMATION
  Report Type: 
  Country: None (occurrence: None)
  Receive Date: 20090121
  Receipt Date: 20081017
  Transmission Date: 20090719
  Serious: Yes (Other)
  Sender: FDA-Public Use
  Company Number: US-WYE-H06475908

PATIENT
  Age: 52 Year
  Sex: Female
  Weight: 72.64 kg

DRUGS (5)
  1. PREMPRO [Suspect]
     Indication: HORMONE REPLACEMENT THERAPY
     Dosage: 1 TABLET 1X PER 1 DAY, ORAL
     Route: 048
     Dates: start: 20081006, end: 20081011
  2. PRILOSEC [Concomitant]
  3. ZYRTEC [Concomitant]
  4. ALPRAZOLAM [Concomitant]
  5. PERCOCET [Concomitant]

REACTIONS (4)
  - CONDITION AGGRAVATED [None]
  - DISTURBANCE IN ATTENTION [None]
  - INSOMNIA [None]
  - MIGRAINE [None]
